FAERS Safety Report 7603413-X (Version None)
Quarter: 2011Q3

REPORT INFORMATION
  Report Type: 
  Country: None (occurrence: None)
  Receive Date: 20110711
  Receipt Date: 20110711
  Transmission Date: 20111222
  Serious: Yes (Life-Threatening, Hospitalization, Disabling)
  Sender: FDA-Public Use
  Company Number: None

PATIENT
  Age: 53 Year
  Sex: Male
  Weight: 74.8435 kg

DRUGS (2)
  1. HALDOL [Suspect]
     Dosage: 200MG MONTHLY IM
     Route: 030
  2. HALDOL [Suspect]
     Indication: SCHIZOPHRENIA
     Dosage: 200MG MONTHLY IM
     Route: 030

REACTIONS (11)
  - MENTAL STATUS CHANGES [None]
  - FAECAL INCONTINENCE [None]
  - LIQUID PRODUCT PHYSICAL ISSUE [None]
  - ABNORMAL BEHAVIOUR [None]
  - PRODUCT LABEL ISSUE [None]
  - FEELING ABNORMAL [None]
  - AGGRESSION [None]
  - DIET REFUSAL [None]
  - ACTIVITIES OF DAILY LIVING IMPAIRED [None]
  - FALL [None]
  - URINARY INCONTINENCE [None]
